FAERS Safety Report 4598348-3 (Version None)
Quarter: 2005Q1

REPORT INFORMATION
  Report Type: 
  Country: None (occurrence: None)
  Receive Date: 20050301
  Receipt Date: 20050301
  Transmission Date: 20050727
  Serious: Yes (Life-Threatening)
  Sender: FDA-Public Use
  Company Number: None

PATIENT
  Sex: Female
  Weight: 68.0396 kg

DRUGS (7)
  1. TIZANIDINE HCL [Suspect]
     Dosage: PO ONCE QID
     Route: 048
     Dates: start: 20050207
  2. TIZANIDINE HCL [Suspect]
  3. KLONOPIN [Concomitant]
  4. NEURONTIN [Concomitant]
  5. SOMA [Concomitant]
  6. LORTAB [Concomitant]
  7. ZOMIG [Concomitant]

REACTIONS (4)
  - CHEST PAIN [None]
  - DYSPNOEA [None]
  - FEELING ABNORMAL [None]
  - SYNCOPE [None]
